FAERS Safety Report 21606580 (Version 1)
Quarter: 2022Q4

REPORT INFORMATION
  Report Type: Spontaneous
  Country: US (occurrence: US)
  Receive Date: 20221117
  Receipt Date: 20221117
  Transmission Date: 20230113
  Serious: Yes (Hospitalization, Other)
  Sender: FDA-Public Use
  Company Number: US-BRISTOL-MYERS SQUIBB COMPANY-2022-135303

PATIENT
  Age: 47 Year
  Sex: Male
  Weight: 87.5 kg

DRUGS (9)
  1. BELATACEPT [Suspect]
     Active Substance: BELATACEPT
     Indication: Renal transplant
     Route: 042
     Dates: start: 20220210
  2. ROCALTROL [Concomitant]
     Active Substance: CALCITRIOL
     Indication: Product used for unknown indication
     Route: 065
     Dates: start: 20220317
  3. TUMS [Concomitant]
     Active Substance: CALCIUM CARBONATE
     Indication: Product used for unknown indication
     Dosage: CALCIUM 500 MG
     Route: 065
     Dates: start: 20220318
  4. EVEROLIMUS [Concomitant]
     Active Substance: EVEROLIMUS
     Indication: Immunosuppressant drug therapy
     Dosage: 4 MG AM  3 MG PM
     Route: 065
     Dates: start: 20220405
  5. LOPRESSOR [Concomitant]
     Active Substance: METOPROLOL TARTRATE
     Indication: Product used for unknown indication
     Route: 065
     Dates: start: 20220311
  6. PENTAM [Concomitant]
     Active Substance: PENTAMIDINE ISETHIONATE
     Indication: Product used for unknown indication
     Dosage: 60 MG OSM 24 HR TABLET
     Route: 065
     Dates: start: 20220325
  7. REVATIO [Concomitant]
     Active Substance: SILDENAFIL CITRATE
     Indication: Pulmonary hypertension
     Route: 065
     Dates: start: 20210615
  8. VALCYTE [Concomitant]
     Active Substance: VALGANCICLOVIR HYDROCHLORIDE
     Indication: Product used for unknown indication
     Route: 065
     Dates: start: 20220408
  9. ALBUTEROL [Concomitant]
     Active Substance: ALBUTEROL
     Indication: Product used for unknown indication
     Route: 065
     Dates: start: 20220228

REACTIONS (15)
  - Abdominal pain [Unknown]
  - Pyrexia [Unknown]
  - Nausea [Unknown]
  - Vomiting [Unknown]
  - Hydronephrosis [Unknown]
  - Cardiac failure [Unknown]
  - Post procedural urine leak [Unknown]
  - Malaise [Unknown]
  - Back pain [Unknown]
  - Tachycardia [Unknown]
  - Acinetobacter test positive [Unknown]
  - Escherichia test positive [Unknown]
  - Pulmonary oedema [Unknown]
  - Pleural effusion [Unknown]
  - Prescribed overdose [Unknown]

NARRATIVE: CASE EVENT DATE: 20220401
